FAERS Safety Report 6430670-8 (Version None)
Quarter: 2009Q4

REPORT INFORMATION
  Report Type: 
  Country: None (occurrence: None)
  Receive Date: 20091106
  Receipt Date: 20091029
  Transmission Date: 20100525
  Serious: Yes (Hospitalization)
  Sender: FDA-Public Use
  Company Number: B0601911A

PATIENT
  Age: 58 Year
  Sex: Male

DRUGS (3)
  1. AUGMENTIN '125' [Suspect]
     Indication: GROIN ABSCESS
     Route: 065
     Dates: start: 20090411, end: 20090508
  2. UNKNOWN MEDICATION [Suspect]
     Indication: LYMPHOMA
     Route: 065
     Dates: start: 20081101, end: 20090301
  3. AUGMENTIN XR [Concomitant]
     Indication: DRUG USE FOR UNKNOWN INDICATION
     Route: 065
     Dates: start: 20090420, end: 20090428

REACTIONS (3)
  - CHOLANGITIS [None]
  - GROWTH RETARDATION [None]
  - HEPATITIS CHOLESTATIC [None]
